FAERS Safety Report 12926940 (Version 2)
Quarter: 2016Q4

REPORT INFORMATION
  Report Type: Spontaneous
  Country: US (occurrence: US)
  Receive Date: 20161108
  Receipt Date: 20161124
  Transmission Date: 20170207
  Serious: Yes (Hospitalization)
  Sender: FDA-Public Use
  Company Number: US-BIOGEN-2016BI00313338

PATIENT
  Age: 67 Year
  Sex: Female

DRUGS (1)
  1. TECFIDERA [Suspect]
     Active Substance: DIMETHYL FUMARATE
     Indication: MULTIPLE SCLEROSIS
     Route: 065
     Dates: start: 20160926

REACTIONS (4)
  - Fall [Recovered/Resolved]
  - Lung perforation [Unknown]
  - Pneumothorax [Recovered/Resolved]
  - Rib fracture [Not Recovered/Not Resolved]

NARRATIVE: CASE EVENT DATE: 20161027
